FAERS Safety Report 9363390 (Version 1)
Quarter: 2013Q2

REPORT INFORMATION
  Report Type: Spontaneous
  Country: US (occurrence: US)
  Receive Date: 20130624
  Receipt Date: 20130624
  Transmission Date: 20140414
  Serious: Yes (Life-Threatening, Other)
  Sender: FDA-Public Use
  Company Number: US-JNJFOC-20130608082

PATIENT
  Sex: 0

DRUGS (6)
  1. RISPERIDONE [Suspect]
     Indication: SCHIZOPHRENIA
     Route: 065
  2. RISPERIDONE [Suspect]
     Indication: SCHIZOAFFECTIVE DISORDER
     Route: 065
  3. QUETIAPINE [Suspect]
     Indication: SCHIZOPHRENIA
     Route: 065
  4. QUETIAPINE [Suspect]
     Indication: SCHIZOAFFECTIVE DISORDER
     Route: 065
  5. ARIPIPRAZOLE [Suspect]
     Indication: SCHIZOPHRENIA
     Route: 065
  6. ARIPIPRAZOLE [Suspect]
     Indication: SCHIZOAFFECTIVE DISORDER
     Route: 065

REACTIONS (21)
  - Mental disorder [Unknown]
  - Agitation [Unknown]
  - Psychotic disorder [Unknown]
  - Suicidal ideation [Unknown]
  - Depression [Unknown]
  - Hallucination [Unknown]
  - Homicidal ideation [Unknown]
  - Paranoia [Unknown]
  - Self injurious behaviour [Unknown]
  - Suicide attempt [Unknown]
  - Extrapyramidal disorder [Unknown]
  - Fatigue [Unknown]
  - Headache [Unknown]
  - Insomnia [Unknown]
  - Somnolence [Unknown]
  - Back pain [Unknown]
  - Treatment noncompliance [Unknown]
  - Adverse event [Unknown]
  - Weight increased [Unknown]
  - Blood prolactin decreased [Unknown]
  - Drug ineffective [Unknown]
